FAERS Safety Report 5542574-3 (Version None)
Quarter: 2007Q4

REPORT INFORMATION
  Report Type: 
  Country: None (occurrence: None)
  Receive Date: 20071205
  Receipt Date: 20071205
  Transmission Date: 20080405
  Serious: Yes (Hospitalization)
  Sender: FDA-Public Use
  Company Number: None

PATIENT
  Age: 14 Year
  Sex: Male
  Weight: 89 kg

DRUGS (1)
  1. HURRICAINE SPRAY [Suspect]
     Dosage: 1 SPRAY  ONCE  ENDOTRACHEA
     Route: 007
     Dates: start: 20071129, end: 20071129

REACTIONS (3)
  - BLOOD DISORDER [None]
  - METHAEMOGLOBINAEMIA [None]
  - OXYGEN SATURATION DECREASED [None]
